FAERS Safety Report 24951402 (Version 1)
Quarter: 2025Q1

REPORT INFORMATION
  Report Type: Spontaneous
  Country: GB (occurrence: GB)
  Receive Date: 20250210
  Receipt Date: 20250210
  Transmission Date: 20250408
  Serious: Yes (Other)
  Sender: SK LIFE SCIENCE
  Company Number: GB-ACRAF SpA-2025-036990

PATIENT

DRUGS (5)
  1. XCOPRI [Suspect]
     Active Substance: CENOBAMATE
     Indication: Product used for unknown indication
     Route: 065
     Dates: start: 2022
  2. XCOPRI [Suspect]
     Active Substance: CENOBAMATE
     Route: 065
  3. BRIVARACETAM [Concomitant]
     Active Substance: BRIVARACETAM
     Indication: Product used for unknown indication
     Route: 065
  4. CLOBAZAM [Concomitant]
     Active Substance: CLOBAZAM
     Indication: Product used for unknown indication
     Route: 065
  5. ESLICARBAZEPINE ACETATE [Concomitant]
     Active Substance: ESLICARBAZEPINE ACETATE
     Indication: Product used for unknown indication
     Route: 065

REACTIONS (5)
  - Depressed level of consciousness [Unknown]
  - Bradyphrenia [Unknown]
  - Social avoidant behaviour [Unknown]
  - Aphasia [Unknown]
  - Sedation [Unknown]
